FAERS Safety Report 4860110-1 (Version None)
Quarter: 2005Q4

REPORT INFORMATION
  Report Type: 
  Country: None (occurrence: None)
  Receive Date: 20051219
  Receipt Date: 20051104
  Transmission Date: 20060501
  Serious: Yes (Hospitalization, Disabling)
  Sender: FDA-Public Use
  Company Number: US-MERCK-0511USA00853

PATIENT
  Age: 42 Year
  Sex: Female
  Weight: 91 kg

DRUGS (6)
  1. VIOXX [Suspect]
     Indication: OSTEOARTHRITIS
     Route: 048
     Dates: start: 20020601, end: 20041001
  2. VIOXX [Suspect]
     Route: 048
     Dates: start: 20020601, end: 20041001
  3. VIOXX [Suspect]
     Indication: RHEUMATOID ARTHRITIS
     Route: 048
     Dates: start: 20020601, end: 20041001
  4. VIOXX [Suspect]
     Route: 048
     Dates: start: 20020601, end: 20041001
  5. CORTISONE [Concomitant]
     Route: 065
  6. ALBUTEROL [Concomitant]
     Route: 065

REACTIONS (10)
  - AMNESIA [None]
  - ARTHRITIS [None]
  - BONE DISORDER [None]
  - CEREBROVASCULAR ACCIDENT [None]
  - DEPRESSION [None]
  - FIBROMYALGIA [None]
  - FIBROSIS [None]
  - HAEMATOCHEZIA [None]
  - HYPOAESTHESIA [None]
  - TRANSIENT ISCHAEMIC ATTACK [None]
